FAERS Safety Report 18317977 (Version 1)
Quarter: 2020Q3

REPORT INFORMATION
  Report Type: Spontaneous
  Country: GB (occurrence: GB)
  Receive Date: 20200928
  Receipt Date: 20200928
  Transmission Date: 20201103
  Serious: Yes (Hospitalization)
  Sender: FDA-Public Use
  Company Number: GB-TEVA-2020-GB-1830842

PATIENT
  Age: 32 Year
  Sex: Male
  Weight: 100 kg

DRUGS (5)
  1. MYCOPHENOLATE MOFETIL. [Concomitant]
     Active Substance: MYCOPHENOLATE MOFETIL
  2. CHLORAMPHENICOL [Concomitant]
     Active Substance: CHLORAMPHENICOL
     Dates: start: 20190208
  3. TACROLIMUS. [Interacting]
     Active Substance: TACROLIMUS
     Dosage: 2MG MORNING, 1MG AFTERNOON, UNIT DOSE : 3 MILLIGRAM
  4. CLARITHROMYCIN. [Suspect]
     Active Substance: CLARITHROMYCIN
     Indication: EYE INFECTION BACTERIAL
     Dosage: UNIT DOSE : 1000 MILLIGRAM
     Route: 048
     Dates: start: 20190208, end: 20190215
  5. PREDNISOLONE. [Concomitant]
     Active Substance: PREDNISOLONE

REACTIONS (7)
  - Labelled drug-drug interaction medication error [Unknown]
  - Diarrhoea [Unknown]
  - Blood creatinine increased [Recovered/Resolved]
  - Hyperkalaemia [Unknown]
  - Potentiating drug interaction [Unknown]
  - Acute kidney injury [Unknown]
  - Nephropathy toxic [Unknown]

NARRATIVE: CASE EVENT DATE: 201902
